FAERS Safety Report 10291958 (Version 1)
Quarter: 2014Q3

REPORT INFORMATION
  Report Type: Spontaneous
  Country: US (occurrence: US)
  Receive Date: 20140710
  Receipt Date: 20140710
  Transmission Date: 20150326
  Serious: Yes (Other)
  Sender: FDA-Public Use
  Company Number: US-BAXTER-2014BAX036807

PATIENT
  Age: 84 Year
  Sex: Female

DRUGS (8)
  1. CEFTRIAXONE AND DEXTROSE [Suspect]
     Active Substance: CEFTRIAXONE SODIUM
     Indication: CELLULITIS
  2. DEXAMETHASONE. [Suspect]
     Active Substance: DEXAMETHASONE
     Indication: CELLULITIS
  3. VANCOMYCIN INJECTION, USP [Suspect]
     Active Substance: VANCOMYCIN
     Indication: SINUSITIS
     Route: 042
  4. DEXAMETHASONE. [Suspect]
     Active Substance: DEXAMETHASONE
     Indication: SINUSITIS
     Route: 065
  5. VANCOMYCIN INJECTION, USP [Suspect]
     Active Substance: VANCOMYCIN
     Indication: CELLULITIS
  6. NASAL SALINE RINSES [Suspect]
     Active Substance: SODIUM CHLORIDE
     Indication: CELLULITIS
  7. CEFTRIAXONE AND DEXTROSE [Suspect]
     Active Substance: CEFTRIAXONE SODIUM
     Indication: SINUSITIS
     Route: 042
  8. SALINE NASAL [Suspect]
     Active Substance: SODIUM CHLORIDE
     Indication: SINUSITIS
     Route: 045

REACTIONS (3)
  - Cavernous sinus thrombosis [Recovered/Resolved]
  - Eyelid ptosis [Recovered/Resolved]
  - Cranial nerve palsies multiple [Recovered/Resolved]
